FAERS Safety Report 6045929-6 (Version None)
Quarter: 2009Q1

REPORT INFORMATION
  Report Type: 
  Country: None (occurrence: None)
  Receive Date: 20090121
  Receipt Date: 20090121
  Transmission Date: 20090719
  Serious: Yes (Other)
  Sender: FDA-Public Use
  Company Number: AU-ABBOTT-08P-008-0480588-00

PATIENT
  Sex: Female
  Weight: 48 kg

DRUGS (1)
  1. HUMIRA [Suspect]
     Indication: FISTULA
     Dates: start: 20070822, end: 20080728

REACTIONS (6)
  - ANTINUCLEAR ANTIBODY POSITIVE [None]
  - ARTHRALGIA [None]
  - C-REACTIVE PROTEIN INCREASED [None]
  - DOUBLE STRANDED DNA ANTIBODY [None]
  - HISTONE ANTIBODY POSITIVE [None]
  - POLYARTHRITIS [None]
